FAERS Safety Report 13384952 (Version 1)
Quarter: 2017Q1

REPORT INFORMATION
  Report Type: Spontaneous
  Country: US (occurrence: US)
  Receive Date: 20170329
  Receipt Date: 20170329
  Transmission Date: 20170429
  Serious: Yes (Other)
  Sender: FDA-Public Use
  Company Number: US-JAZZ-2014-US-002763

PATIENT
  Age: 67 Year
  Sex: Male
  Weight: 73.42 kg

DRUGS (6)
  1. XYREM [Suspect]
     Active Substance: SODIUM OXYBATE
     Indication: FIBROMYALGIA
     Dosage: 3.0 G, BID
     Route: 048
     Dates: start: 200808, end: 2008
  2. XYREM [Suspect]
     Active Substance: SODIUM OXYBATE
     Indication: INSOMNIA
     Dosage: DOSE ADJUSTMENTS
     Route: 048
  3. SINEMET [Suspect]
     Active Substance: CARBIDOPA\LEVODOPA
     Indication: PARKINSON^S DISEASE
     Dosage: UNK
     Dates: start: 201402, end: 201404
  4. SINEMET [Suspect]
     Active Substance: CARBIDOPA\LEVODOPA
     Dosage: UNK
  5. TRIHEXYPHENIDYL HYDROCHLORIDE. [Concomitant]
     Active Substance: TRIHEXYPHENIDYL HYDROCHLORIDE
     Indication: PARKINSON^S DISEASE
     Dosage: UNK
     Dates: start: 201404
  6. XYREM [Suspect]
     Active Substance: SODIUM OXYBATE
     Indication: SLEEP DISORDER
     Dosage: 4.5 G, BID
     Route: 048
     Dates: start: 201305

REACTIONS (10)
  - Vomiting [Recovering/Resolving]
  - Diarrhoea [Unknown]
  - Product use issue [Unknown]
  - Abdominal discomfort [Recovering/Resolving]
  - Road traffic accident [Recovered/Resolved]
  - Dementia [Not Recovered/Not Resolved]
  - Sudden onset of sleep [Unknown]
  - Anxiety [Unknown]
  - Parkinson^s disease [Not Recovered/Not Resolved]
  - Sleep paralysis [Unknown]

NARRATIVE: CASE EVENT DATE: 20130723
